FAERS Safety Report 25799305 (Version 1)
Quarter: 2025Q3

REPORT INFORMATION
  Report Type: Spontaneous
  Country: IN (occurrence: IN)
  Receive Date: 20250913
  Receipt Date: 20250913
  Transmission Date: 20251021
  Serious: Yes (Death)
  Sender: NOVARTIS
  Company Number: IN-002147023-NVSC2025IN143193

PATIENT
  Age: 55 Year
  Sex: Female

DRUGS (2)
  1. IMATINIB [Suspect]
     Active Substance: IMATINIB
     Indication: Pulmonary tumour thrombotic microangiopathy
     Route: 065
  2. RIOCIGUAT [Concomitant]
     Active Substance: RIOCIGUAT
     Indication: Chronic obstructive pulmonary disease
     Route: 065

REACTIONS (1)
  - Drug ineffective for unapproved indication [Fatal]
